FAERS Safety Report 9607551 (Version 3)
Quarter: 2014Q2

REPORT INFORMATION
  Report Type: Spontaneous
  Country: GB (occurrence: GB)
  Receive Date: 20131009
  Receipt Date: 20140616
  Transmission Date: 20141212
  Serious: Yes (Other)
  Sender: FDA-Public Use
  Company Number: PHFR2013GB005649

PATIENT
  Age: 42 Year
  Sex: Male

DRUGS (8)
  1. CLOZARIL [Suspect]
     Indication: SCHIZOPHRENIA
     Dosage: 250 MG DAILY
     Route: 048
     Dates: start: 20070309
  2. LAMOTRIGINE [Concomitant]
     Dosage: 100 MG, DAILY
     Route: 048
  3. HYOSCINE [Concomitant]
     Dosage: 333 MG, DAILY
     Route: 061
  4. ATENOLOL [Concomitant]
     Dosage: 25 MG, DAILY
     Route: 048
  5. LANSOPRAZOLE [Concomitant]
     Dosage: 30 MG, DAILY
     Route: 048
  6. MOVICOL [Concomitant]
     Dosage: UNK
     Route: 048
  7. PERINDOPRIL [Concomitant]
     Dosage: 2 MG, DAILY
     Route: 048
  8. SIMVASTATIN [Concomitant]
     Dosage: 40 MG, DAILY
     Route: 048

REACTIONS (3)
  - Myocardial ischaemia [Unknown]
  - Chest pain [Recovered/Resolved]
  - Angina pectoris [Unknown]
